FAERS Safety Report 6585561-9 (Version None)
Quarter: 2010Q1

REPORT INFORMATION
  Report Type: 
  Country: None (occurrence: None)
  Receive Date: 20100217
  Receipt Date: 20100211
  Transmission Date: 20100710
  Serious: Yes (Death, Life-Threatening, Hospitalization)
  Sender: FDA-Public Use
  Company Number: AU-ROCHE-553324

PATIENT
  Sex: Female
  Weight: 149 kg

DRUGS (12)
  1. TOCILIZUMAB [Suspect]
     Indication: RHEUMATOID ARTHRITIS
     Dosage: DOSE ALSO REPORTED AS 8 MG/KG MONTHLY. DOSAGE FORM REPORTED AS INFUSION.
     Route: 042
     Dates: start: 20060518, end: 20080404
  2. PLACEBO [Suspect]
     Indication: RHEUMATOID ARTHRITIS
     Dosage: DOSING AMOUNT IS BLINDED.
     Route: 042
  3. BUPRENORPHINE [Concomitant]
     Dosage: DRUG NAME REPORTED AS BUPRENORPHINE TRANSDERMAL PATCH.
     Dates: start: 20071122
  4. COVERSYL [Concomitant]
     Dates: start: 20061212
  5. FOLIC ACID [Concomitant]
     Dates: start: 20010302
  6. METHOTREXATE [Concomitant]
     Dates: start: 20010302
  7. PERNA CANALICULUS [Concomitant]
     Dosage: DRUG NAME REPORTED AS PERNA CANALICULUS OIL.
     Dates: start: 20070511
  8. PREDNISOLONE [Concomitant]
     Dates: start: 20010101
  9. TRAMADOL [Concomitant]
     Dosage: FREQUENCY REPORTED AS PRN.
     Dates: start: 20070418
  10. ALBUTEROL [Concomitant]
     Dosage: DRUG NAME REPORTED AS SALBUTAMOL INHALER. TDD REPORTED AS 1-2 PUFFS PRN.
  11. SERETIDE [Concomitant]
     Dosage: DRUG NAME REPORTED AS SERETIDE INHALER. TDD REPORTED AS 1-2 PUFFS PRN.
  12. DIAZEPAM [Concomitant]
     Dates: start: 20080120, end: 20080323

REACTIONS (2)
  - PLEURISY [None]
  - SPINDLE CELL SARCOMA [None]
